FAERS Safety Report 7700723-2 (Version None)
Quarter: 2011Q3

REPORT INFORMATION
  Report Type: 
  Country: None (occurrence: None)
  Receive Date: 20110822
  Receipt Date: 20110815
  Transmission Date: 20111222
  Serious: Yes (Other)
  Sender: FDA-Public Use
  Company Number: US-PFIZER INC-2011167364

PATIENT
  Sex: Female
  Weight: 98.866 kg

DRUGS (5)
  1. CHANTIX [Interacting]
     Dosage: 1 MG, 2X/DAY
     Route: 048
     Dates: start: 20110101, end: 20110420
  2. HYDROCHLOROTHIAZIDE [Interacting]
     Indication: HYPERTENSION
     Dosage: UNK, DAILY
  3. TRIAMTERENE [Concomitant]
     Indication: HYPERTENSION
     Dosage: UNK, DAILY
  4. CHANTIX [Suspect]
     Indication: SMOKING CESSATION THERAPY
     Dosage: 0.5 MG, 1X/DAY
     Route: 048
     Dates: start: 20110115, end: 20110101
  5. ATENOLOL [Concomitant]
     Indication: HYPERTENSION
     Dosage: UNK, DAILY

REACTIONS (7)
  - WEIGHT INCREASED [None]
  - BLOOD SODIUM DECREASED [None]
  - BLOOD CHOLESTEROL INCREASED [None]
  - DRUG INTERACTION [None]
  - DYSGEUSIA [None]
  - MALAISE [None]
  - WEIGHT DECREASED [None]
